FAERS Safety Report 13292235 (Version 2)
Quarter: 2017Q1

REPORT INFORMATION
  Report Type: Spontaneous
  Country: FR (occurrence: FR)
  Receive Date: 20170303
  Receipt Date: 20170324
  Transmission Date: 20170428
  Serious: Yes (Hospitalization)
  Sender: FDA-Public Use
  Company Number: FR-BIOVITRUM-2017FR0213

PATIENT
  Age: 75 Year
  Sex: Female

DRUGS (7)
  1. ORBENINE [Suspect]
     Active Substance: CLOXACILLIN SODIUM
     Indication: ENDOCARDITIS
     Route: 041
     Dates: start: 20170120, end: 20170208
  2. ROCEPHINE [Concomitant]
     Active Substance: CEFTRIAXONE SODIUM
     Dates: start: 20170119, end: 20170120
  3. LEVOFLOXACINE [Concomitant]
     Active Substance: LEVOFLOXACIN
     Dates: start: 20170119, end: 20170120
  4. GENTAMICIN. [Concomitant]
     Active Substance: GENTAMICIN
     Dates: start: 20170120, end: 20170122
  5. TAMIFLU [Concomitant]
     Active Substance: OSELTAMIVIR PHOSPHATE
     Dates: start: 20170118, end: 20170122
  6. KINERET [Suspect]
     Active Substance: ANAKINRA
     Route: 058
     Dates: start: 20170201
  7. KINERET [Suspect]
     Active Substance: ANAKINRA
     Indication: RHEUMATOID ARTHRITIS
     Route: 058
     Dates: start: 201607, end: 20170119

REACTIONS (3)
  - Agranulocytosis [Recovered/Resolved]
  - Endocarditis [Recovered/Resolved]
  - Staphylococcal sepsis [Recovered/Resolved]

NARRATIVE: CASE EVENT DATE: 20170120
